FAERS Safety Report 12922168 (Version 1)
Quarter: 2016Q4

REPORT INFORMATION
  Report Type: Spontaneous
  Country: FR (occurrence: FR)
  Receive Date: 20161108
  Receipt Date: 20161108
  Transmission Date: 20170207
  Serious: Yes (Other)
  Sender: FDA-Public Use
  Company Number: FR-PFIZER INC-2016514100

PATIENT
  Age: 78 Year
  Sex: Female

DRUGS (2)
  1. NEURONTIN [Suspect]
     Active Substance: GABAPENTIN
     Dosage: 400 MG, DAILY (HALF OF 800 MG TABLET)
     Route: 048
  2. GABAPENTINE PFIZER [Suspect]
     Active Substance: GABAPENTIN
     Dosage: 400 MG, DAILY (HALF OF 800 MG TABLET)
     Route: 048

REACTIONS (3)
  - Tracheal obstruction [Unknown]
  - Dysphagia [Unknown]
  - Condition aggravated [Unknown]
